FAERS Safety Report 9660535 (Version 3)
Quarter: 2014Q1

REPORT INFORMATION
  Report Type: Spontaneous
  Country: US (occurrence: US)
  Receive Date: 20131031
  Receipt Date: 20140321
  Transmission Date: 20141002
  Serious: Yes (Death)
  Sender: FDA-Public Use
  Company Number: US-BRISTOL-MYERS SQUIBB COMPANY-19638956

PATIENT
  Age: 57 Year
  Sex: Male
  Weight: 122 kg

DRUGS (9)
  1. BYETTA [Suspect]
     Indication: TYPE 2 DIABETES MELLITUS
     Dates: start: 20070103, end: 201107
  2. ASPIRIN [Concomitant]
     Dosage: ENTERIC COATED TAB,LAST DOSE:18MAY11
     Route: 048
  3. CIPRO [Concomitant]
     Dosage: LAST DOSE 20JUN11
     Route: 048
  4. VASOTEC [Concomitant]
     Dosage: LAST DOSE 20JUN11,TAB
     Route: 048
  5. FLAGYL [Concomitant]
     Dosage: LAST DOSE ON 20JUN11
     Route: 048
  6. TOPROL XL [Concomitant]
     Dosage: 1 TAB
  7. PROTONIX [Concomitant]
     Dosage: TAB
     Route: 048
  8. INSULIN [Concomitant]
  9. LANTUS [Concomitant]
     Route: 058

REACTIONS (1)
  - Pancreatic carcinoma [Fatal]
